FAERS Safety Report 6576607-2 (Version None)
Quarter: 2010Q1

REPORT INFORMATION
  Report Type: 
  Country: None (occurrence: None)
  Receive Date: 20100210
  Receipt Date: 20100202
  Transmission Date: 20100710
  Serious: Yes (Other)
  Sender: FDA-Public Use
  Company Number: PHHY2009CA42554

PATIENT
  Sex: Female

DRUGS (8)
  1. EXELON [Suspect]
     Indication: DEMENTIA
     Dosage: 10CM2
     Dates: start: 20090610
  2. OMEPRAZOLE [Concomitant]
  3. NOVO-DOCUSATE [Concomitant]
  4. LIPITOR [Concomitant]
  5. ATACAND HCT [Concomitant]
  6. DITROPAN XL [Concomitant]
  7. CELEBREX [Concomitant]
  8. ATIVAN [Concomitant]

REACTIONS (4)
  - APPLICATION SITE ERYTHEMA [None]
  - APPLICATION SITE INFLAMMATION [None]
  - APPLICATION SITE PRURITUS [None]
  - DERMATITIS ALLERGIC [None]
